FAERS Safety Report 4371201-6 (Version None)
Quarter: 2004Q2

REPORT INFORMATION
  Report Type: 
  Country: None (occurrence: None)
  Receive Date: 20040604
  Receipt Date: 20040526
  Transmission Date: 20050107
  Serious: Yes (Other)
  Sender: FDA-Public Use
  Company Number: IT-GLAXOSMITHKLINE-B0333859A

PATIENT
  Sex: Female

DRUGS (7)
  1. VINORELBINE TARTRATE [Suspect]
     Dosage: 25MGM2 UNKNOWN
     Route: 042
  2. EPIRUBICIN [Suspect]
     Dosage: 75MGM2 UNKNOWN
     Route: 042
  3. CISPLATIN [Suspect]
     Dosage: 50MGM2 UNKNOWN
     Route: 065
  4. NORMAL SALINE + KCL [Concomitant]
     Route: 065
  5. FUROSEMIDE [Concomitant]
     Route: 042
  6. METOCLOPRAMIDE [Concomitant]
     Route: 042
  7. DEXAMETHASONE [Concomitant]
     Route: 042

REACTIONS (1)
  - EJECTION FRACTION DECREASED [None]
